FAERS Safety Report 9203831 (Version 1)
Quarter: 2013Q2

REPORT INFORMATION
  Report Type: Report from Study
  Country: IT (occurrence: IT)
  Receive Date: 20130402
  Receipt Date: 20130402
  Transmission Date: 20140414
  Serious: Yes (Death)
  Sender: FDA-Public Use
  Company Number: IT-ASTELLAS-2013EU002959

PATIENT
  Age: 63 Year
  Sex: Female

DRUGS (2)
  1. MICAFUNGIN INJECTION [Suspect]
     Dosage: 100 MG, UNKNOWN/D
     Route: 065
     Dates: start: 20111017
  2. DOPAMINE [Concomitant]
     Dosage: UNK
     Route: 065

REACTIONS (2)
  - Respiratory failure [Fatal]
  - Coma [Fatal]
